FAERS Safety Report 7164187-2 (Version None)
Quarter: 2010Q4

REPORT INFORMATION
  Report Type: 
  Country: None (occurrence: None)
  Receive Date: 20101123
  Receipt Date: 20100804
  Transmission Date: 20110411
  Serious: No
  Sender: FDA-Public Use
  Company Number: 015770

PATIENT
  Sex: Male

DRUGS (2)
  1. CIMZIA [Suspect]
     Indication: CROHN'S DISEASE
     Dosage: UNSPECIFIED SUBCUTANEOUS, 400 1X/2 WEEKS, SUBCUTANEOUS
     Route: 058
     Dates: start: 20100719
  2. CIMZIA [Suspect]
     Indication: CROHN'S DISEASE
     Dosage: UNSPECIFIED SUBCUTANEOUS, 400 1X/2 WEEKS, SUBCUTANEOUS
     Route: 058
     Dates: start: 20100802

REACTIONS (3)
  - ARTHRALGIA [None]
  - MUSCULOSKELETAL PAIN [None]
  - MUSCULOSKELETAL STIFFNESS [None]
